FAERS Safety Report 4472540-0 (Version None)
Quarter: 2004Q4

REPORT INFORMATION
  Report Type: 
  Country: None (occurrence: None)
  Receive Date: 20041007
  Receipt Date: 20040929
  Transmission Date: 20050328
  Serious: Yes (Other)
  Sender: FDA-Public Use
  Company Number: USA-2003-0009155

PATIENT
  Age: 32 Year
  Sex: Male

DRUGS (6)
  1. OXYCONTIN [Suspect]
     Dosage: MG, ORAL
     Route: 048
  2. LORTAB [Suspect]
  3. SOMA [Suspect]
  4. AMBIEN [Suspect]
  5. MORPHINE SULFATE [Suspect]
  6. DEMEROL [Suspect]

REACTIONS (14)
  - AGGRESSION [None]
  - DIVORCED [None]
  - DRUG ABUSER [None]
  - DRUG DEPENDENCE [None]
  - DRUG WITHDRAWAL SYNDROME [None]
  - GUN SHOT WOUND [None]
  - LEGAL PROBLEM [None]
  - LOSS OF CONSCIOUSNESS [None]
  - LOSS OF EMPLOYMENT [None]
  - PHYSICAL ASSAULT [None]
  - SCREAMING [None]
  - TREMOR [None]
  - VICTIM OF HOMICIDE [None]
  - VOMITING [None]
